FAERS Safety Report 5454644-9 (Version None)
Quarter: 2007Q3

REPORT INFORMATION
  Report Type: 
  Country: None (occurrence: None)
  Receive Date: 20070917
  Receipt Date: 20060801
  Transmission Date: 20080115
  Serious: No
  Sender: FDA-Public Use
  Company Number: US-ASTRAZENECA-2006UW15450

PATIENT
  Sex: Female

DRUGS (5)
  1. SEROQUEL [Suspect]
     Route: 048
  2. FLAXSEED OIL [Concomitant]
  3. EXCEDRIN (MIGRAINE) [Concomitant]
  4. CAYENE PEPPER [Concomitant]
  5. NIGHTTIME SLEEP AIDE-PM [Concomitant]

REACTIONS (1)
  - DRUG SCREEN POSITIVE [None]
